FAERS Safety Report 8548713-4 (Version None)
Quarter: 2012Q3

REPORT INFORMATION
  Report Type: 
  Country: None (occurrence: None)
  Receive Date: 20120730
  Receipt Date: 20120723
  Transmission Date: 20120928
  Serious: Yes (Life-Threatening, Other)
  Sender: FDA-Public Use
  Company Number: PHHY2012MX064640

PATIENT
  Sex: Female

DRUGS (1)
  1. ZOLEDRONOC ACID [Suspect]
     Indication: OSTEOPOROSIS
     Dosage: 1 APPLICATION (5MG/100 ML) EACH YEAR
     Route: 042
     Dates: start: 20111001

REACTIONS (5)
  - SYNCOPE [None]
  - FEELING ABNORMAL [None]
  - PAIN [None]
  - PYREXIA [None]
  - HYPOTENSION [None]
